FAERS Safety Report 7853972-7 (Version None)
Quarter: 2011Q4

REPORT INFORMATION
  Report Type: 
  Country: None (occurrence: None)
  Receive Date: 20111026
  Receipt Date: 20111024
  Transmission Date: 20120403
  Serious: Yes (Death)
  Sender: FDA-Public Use
  Company Number: US-PFIZER INC-2011257338

PATIENT
  Sex: Male

DRUGS (1)
  1. SUTENT [Suspect]
     Indication: SMALL INTESTINE CARCINOMA
     Dosage: 50 MG, 1X/DAY

REACTIONS (1)
  - DEATH [None]
